FAERS Safety Report 8790299 (Version 4)
Quarter: 2013Q1

REPORT INFORMATION
  Report Type: Spontaneous
  Country: US (occurrence: US)
  Receive Date: 20120917
  Receipt Date: 20130220
  Transmission Date: 20140127
  Serious: Yes (Hospitalization, Other)
  Sender: FDA-Public Use
  Company Number: US-009507513-1203USA00026

PATIENT
  Sex: Female
  Weight: 54.65 kg

DRUGS (12)
  1. FOSAMAX [Suspect]
     Indication: OSTEOPENIA
     Dosage: 70 MG, QW
     Route: 048
     Dates: start: 2002, end: 200906
  2. VITAMINS (UNSPECIFIED) [Concomitant]
  3. CALCIUM (UNSPECIFIED) [Concomitant]
  4. VITAMIN E [Concomitant]
  5. ALLEGRA [Concomitant]
     Indication: SEASONAL ALLERGY
     Dosage: 180 MG, UNK
     Route: 048
  6. LOVASTATIN [Concomitant]
     Indication: HYPERCHOLESTEROLAEMIA
  7. NEXIUM [Concomitant]
     Indication: GASTROOESOPHAGEAL REFLUX DISEASE
     Dosage: 40 MG, QAM
  8. PULMICORT [Concomitant]
     Indication: ASTHMA
  9. SINGULAIR [Concomitant]
     Indication: ASTHMA
     Dosage: 10 MG, HS
  10. FOSAMAX D [Suspect]
     Indication: OSTEOPENIA
     Dosage: UNK
     Dates: start: 200709, end: 200901
  11. ALENDRONATE SODIUM [Suspect]
     Dosage: 70 MG, QD
     Dates: start: 200902, end: 200906
  12. CORTICOSTEROIDS (UNSPECIFIED) [Concomitant]
     Dosage: UNK
     Dates: start: 1972

REACTIONS (11)
  - Intramedullary rod insertion [Unknown]
  - Pulmonary mass [Unknown]
  - Anxiety [Unknown]
  - Panic attack [Unknown]
  - Femur fracture [Unknown]
  - Chronic obstructive pulmonary disease [Unknown]
  - Type 2 diabetes mellitus [Unknown]
  - Low turnover osteopathy [Unknown]
  - Conjunctival disorder [Unknown]
  - Bone disorder [Unknown]
  - Refraction disorder [Unknown]
